FAERS Safety Report 6314746-1 (Version None)
Quarter: 2009Q3

REPORT INFORMATION
  Report Type: 
  Country: None (occurrence: None)
  Receive Date: 20090817
  Receipt Date: 20090806
  Transmission Date: 20100115
  Serious: Yes (Disabling)
  Sender: FDA-Public Use
  Company Number: ADR13042009

PATIENT
  Age: 75 Year
  Sex: Male

DRUGS (9)
  1. SIMVASTATIN [Suspect]
     Indication: CARDIOVASCULAR DISORDER
     Dosage: 40MG
     Route: 048
     Dates: start: 20060203, end: 20090713
  2. AMLODIPINE [Suspect]
     Dosage: 5MG
     Dates: start: 20050817
  3. CARVEDILOL [Concomitant]
  4. CO-CODAMOL [Concomitant]
  5. FRUSEMIDE [Concomitant]
  6. IRBESARTAN [Concomitant]
  7. RABEPRAZOLE SODIUM [Concomitant]
  8. ZIMOVANE [Concomitant]
  9. FERROUS SULFATE TAB [Concomitant]

REACTIONS (1)
  - ANGIOEDEMA [None]
